FAERS Safety Report 13593117 (Version 1)
Quarter: 2017Q2

REPORT INFORMATION
  Report Type: Spontaneous
  Country: US (occurrence: US)
  Receive Date: 20170530
  Receipt Date: 20170530
  Transmission Date: 20170830
  Serious: Yes (Hospitalization)
  Sender: FDA-Public Use
  Company Number: US-MYLANLABS-2016M1040552

PATIENT

DRUGS (4)
  1. MACROGOL [Concomitant]
     Active Substance: POLYETHYLENE GLYCOLS
  2. CALCITONIN SALMON. [Suspect]
     Active Substance: CALCITONIN SALMON
     Indication: PRODUCT USED FOR UNKNOWN INDICATION
     Dosage: UNK
  3. ZOLEDRONIC ACID [Suspect]
     Active Substance: ZOLEDRONIC ACID
     Indication: HYPERCALCAEMIA
     Dosage: UNK, 1 DOSE
  4. FUROSEMIDE. [Concomitant]
     Active Substance: FUROSEMIDE
     Indication: PRODUCT USED FOR UNKNOWN INDICATION

REACTIONS (2)
  - Hypocalcaemia [Recovered/Resolved]
  - Tachyphylaxis [Unknown]
